FAERS Safety Report 19990434 (Version 4)
Quarter: 2023Q1

REPORT INFORMATION
  Report Type: Report from Study
  Country: CO (occurrence: CO)
  Receive Date: 20211025
  Receipt Date: 20230219
  Transmission Date: 20230418
  Serious: Yes (Other)
  Sender: FDA-Public Use
  Company Number: CO-NOVARTISPH-NVSC2021CO241419

PATIENT
  Age: 62 Year
  Sex: Female
  Weight: 78 kg

DRUGS (9)
  1. KISQALI [Suspect]
     Active Substance: RIBOCICLIB
     Indication: Hormone receptor positive HER2 negative breast cancer
     Dosage: 600 MG, QD
     Route: 048
     Dates: start: 20210716
  2. KISQALI [Suspect]
     Active Substance: RIBOCICLIB
     Dosage: UNK, QD (ONCE DAILY)
     Route: 048
  3. FEMARA [Suspect]
     Active Substance: LETROZOLE
     Indication: Breast cancer
     Dosage: 2.5 MG, QD
     Route: 048
     Dates: start: 20210716
  4. FEMARA [Suspect]
     Active Substance: LETROZOLE
     Dosage: UNK, QD (ONCE DAILY)
     Route: 048
  5. METFORMIN [Suspect]
     Active Substance: METFORMIN HYDROCHLORIDE
     Indication: Diabetes mellitus
     Dosage: 50 MG, QD (2 YEARS AGO)
     Route: 048
  6. INSULIN NOS [Concomitant]
     Active Substance: INSULIN NOS
     Indication: Diabetes mellitus
     Dosage: 10 DF, QD (STARTED 3 MONTHS AGO)
     Route: 058
  7. DAPAGLIFLOZIN [Concomitant]
     Active Substance: DAPAGLIFLOZIN
     Indication: Diabetes mellitus
     Dosage: UNK, QD (STARTED 2 YEARS AGO)
     Route: 048
  8. ALENDRONIC ACID [Concomitant]
     Active Substance: ALENDRONIC ACID
     Indication: Bone demineralisation
     Dosage: UNK, QMO (STARTED 6 MONTHS AGO)
     Route: 065
  9. ENALAPRIL [Concomitant]
     Active Substance: ENALAPRIL
     Indication: Hypertension
     Dosage: 20 MG, QD (STARTED 4 YEARS AGO)
     Route: 048

REACTIONS (7)
  - Arrhythmia [Recovered/Resolved]
  - Cardiac disorder [Unknown]
  - Fatigue [Unknown]
  - Breast mass [Unknown]
  - Pain in extremity [Unknown]
  - Product supply issue [Unknown]
  - Product dose omission issue [Unknown]

NARRATIVE: CASE EVENT DATE: 20210801
